FAERS Safety Report 15003490 (Version 1)
Quarter: 2018Q2

REPORT INFORMATION
  Report Type: Spontaneous
  Country: DE (occurrence: DE)
  Receive Date: 20180613
  Receipt Date: 20180613
  Transmission Date: 20180711
  Serious: Yes (Death, Other)
  Sender: FDA-Public Use
  Company Number: DE-TEVA-2018-DE-904975

PATIENT
  Age: 82 Year
  Sex: Female
  Weight: 120 kg

DRUGS (20)
  1. CABERGOLIN TEVA 0.5MG [Interacting]
     Active Substance: CABERGOLINE
     Route: 051
  2. AZITHROMYCIN DR. EBERTH 500 MGPOWDER FOR THE PRODUCTION OF A INFUSIONS [Suspect]
     Active Substance: AZITHROMYCIN
     Indication: PNEUMONIA
     Route: 042
     Dates: start: 20180114, end: 20180118
  3. OPTREX [Concomitant]
     Route: 065
  4. HYLO-COMOD EYE DROPS [Concomitant]
     Route: 065
  5. XARELTO [Concomitant]
     Active Substance: RIVAROXABAN
     Dosage: 20 MILLIGRAM DAILY; 0-1-0 17.30 UHR
     Dates: start: 201505
  6. IBUPROFEN. [Concomitant]
     Active Substance: IBUPROFEN
     Dosage: IF NECESSARY
     Route: 048
  7. SIMVASTATIN-RATIOPHARM 40 MG [Concomitant]
     Dosage: 20 MILLIGRAM DAILY; 0-0-1/2
  8. UNACID [Concomitant]
     Route: 042
  9. PANTOPRAZOL TAD 40MG [Concomitant]
     Dosage: 40 MILLIGRAM DAILY; 1-0-0
     Route: 065
  10. CABERGOLIN TEVA 0.5MG [Suspect]
     Active Substance: CABERGOLINE
     Dosage: 1X/WOCHE SONNTAG
     Route: 048
     Dates: start: 20170114
  11. SALINE FOR INHALATION [Concomitant]
     Dosage: IF NECESSARY
  12. ATROVENT [Concomitant]
     Active Substance: IPRATROPIUM BROMIDE
     Dosage: IF NECESSARY
     Route: 065
  13. BISOPROLOL [Concomitant]
     Active Substance: BISOPROLOL
     Dosage: 1-0-0
     Route: 065
  14. L-THYROX HEXAL 100 [Concomitant]
     Dosage: 100 MICROGRAM DAILY; 1-0-0
     Route: 065
  15. AMITRIPTYLIN [Concomitant]
     Active Substance: AMITRIPTYLINE
     Dosage: 25 MILLIGRAM DAILY; 0-0-1
     Route: 048
  16. EMSELEX [Concomitant]
     Active Substance: DARIFENACIN HYDROBROMIDE
     Dosage: 7.5 MILLIGRAM DAILY; 1-0-0
     Route: 065
  17. FUROSEMID-RATIOPHARM 40 [Concomitant]
     Dosage: 40 MILLIGRAM DAILY; 1-0-0
     Route: 065
  18. PROMETHAZIN-NEURAXPHARM 25 [Concomitant]
     Dosage: 25 MILLIGRAM DAILY; 0-0-1
     Route: 065
  19. RELVAR ELLIPTA 180 UG/22UG INHALATIONSPULVER [Concomitant]
     Dosage: 1 DOSAGE FORMS DAILY; 1-0-0
     Route: 065
  20. RAMIPRIL. [Concomitant]
     Active Substance: RAMIPRIL
     Dosage: 2.5 MILLIGRAM DAILY; 1-0-0
     Route: 065
     Dates: start: 201702

REACTIONS (3)
  - Drug interaction [Unknown]
  - Cardiopulmonary failure [Fatal]
  - Arrhythmia [Fatal]

NARRATIVE: CASE EVENT DATE: 20180119
